FAERS Safety Report 10081836 (Version 2)
Quarter: 2014Q2

REPORT INFORMATION
  Report Type: Spontaneous
  Country: US (occurrence: US)
  Receive Date: 20140416
  Receipt Date: 20140418
  Transmission Date: 20141212
  Serious: Yes (Other)
  Sender: FDA-Public Use
  Company Number: US-PFIZER INC-2014105694

PATIENT
  Age: 76 Year
  Sex: Male
  Weight: 147 kg

DRUGS (1)
  1. LYRICA [Suspect]
     Indication: NEUROPATHY PERIPHERAL
     Dosage: 150 MG, 2X/DAY
     Dates: start: 201309

REACTIONS (2)
  - Choking [Not Recovered/Not Resolved]
  - Pain in extremity [Not Recovered/Not Resolved]
